FAERS Safety Report 26159311 (Version 1)
Quarter: 2025Q4

REPORT INFORMATION
  Report Type: Spontaneous
  Country: US (occurrence: US)
  Receive Date: 20251216
  Receipt Date: 20251216
  Transmission Date: 20260117
  Serious: No
  Sender: ROCHE
  Company Number: US-ROCHE-10000454628

PATIENT
  Age: 70 Year
  Sex: Female
  Weight: 75.75 kg

DRUGS (1)
  1. XOLAIR [Suspect]
     Active Substance: OMALIZUMAB
     Indication: Urticaria chronic
     Route: 058
     Dates: start: 2022

REACTIONS (5)
  - Accidental underdose [Unknown]
  - Accidental exposure to product [Unknown]
  - Device defective [Unknown]
  - Product quality issue [Unknown]
  - Memory impairment [Unknown]

NARRATIVE: CASE EVENT DATE: 20251204
